FAERS Safety Report 4788888-6 (Version None)
Quarter: 2005Q4

REPORT INFORMATION
  Report Type: 
  Country: None (occurrence: None)
  Receive Date: 20051004
  Receipt Date: 20050919
  Transmission Date: 20060501
  Serious: Yes (Hospitalization)
  Sender: FDA-Public Use
  Company Number: APP200500450

PATIENT
  Age: 47 Year
  Sex: Female

DRUGS (8)
  1. DEXAMETHASONE SODIUM PHOSPHATE INJECTION, USP (DEXAMETHASONE SODIUM PH [Suspect]
     Indication: PROPHYLAXIS OF NAUSEA AND VOMITING
     Dosage: (8 MG, ONCE), INTRAVENOUS
     Route: 042
     Dates: start: 20050905, end: 20050905
  2. GW679769 [Suspect]
     Indication: PROPHYLAXIS OF NAUSEA AND VOMITING
     Dosage: (100 MG, ONCE), ORAL
     Route: 048
     Dates: start: 20050905, end: 20050905
  3. ONDANSETRON HYDROCHLORIDE (ONDANSETRON HYDROCHLORIDE) [Suspect]
     Indication: PROPHYLAXIS OF NAUSEA AND VOMITING
     Dosage: (8 MG, ONCE), ORAL
     Route: 048
     Dates: start: 20050905, end: 20050905
  4. CARBOPLATIN [Suspect]
     Indication: NON-SMALL CELL LUNG CANCER
     Dosage: (670 MG, ONCE), INTRAVENOUS
     Route: 042
     Dates: start: 20050905, end: 20050905
  5. DICLOFENAC SODIUM (DICLOFENAC) [Concomitant]
  6. PANTOPRAZOLE SODIUM [Concomitant]
  7. OXYBUTYNIN CHLORIDE [Concomitant]
  8. ACETAMINOPHEN [Concomitant]

REACTIONS (7)
  - ABDOMINAL PAIN [None]
  - CHILLS [None]
  - DIZZINESS [None]
  - DYSPNOEA [None]
  - HYPERTENSION [None]
  - PLEURITIC PAIN [None]
  - RASH [None]
